FAERS Safety Report 21087818 (Version 1)
Quarter: 2022Q3

REPORT INFORMATION
  Report Type: Spontaneous
  Country: ES (occurrence: ES)
  Receive Date: 20220715
  Receipt Date: 20220715
  Transmission Date: 20221026
  Serious: Yes (Life-Threatening)
  Sender: FDA-Public Use
  Company Number: None

PATIENT

DRUGS (9)
  1. BUPROPION HYDROCHLORIDE [Suspect]
     Active Substance: BUPROPION HYDROCHLORIDE
     Indication: Tobacco abuse
     Dosage: 150 MG, 150.0 MG DE
     Route: 048
     Dates: start: 20220701, end: 20220705
  2. BECLOMETHASONE DIPROPIONATE\FORMOTEROL FUMARATE\GLYCOPYRROLATE [Concomitant]
     Active Substance: BECLOMETHASONE DIPROPIONATE\FORMOTEROL FUMARATE\GLYCOPYRROLATE
     Indication: Bronchitis chronic
     Dosage: 2 PUFF(S), BID, 2.0 PUFF C/12 H
     Route: 065
     Dates: start: 20210531
  3. BISOPROLOL [Concomitant]
     Active Substance: BISOPROLOL
     Indication: Tachycardia
     Dosage: 2.5 MG, 2.5 MG DECE
     Route: 048
     Dates: start: 20200812
  4. AZITHROMYCIN [Concomitant]
     Active Substance: AZITHROMYCIN
     Indication: COVID-19
     Dosage: 500 MG, QD, 500.0 MG C/24 H
     Route: 048
     Dates: start: 20220628, end: 20220702
  5. VENTOLIN [Concomitant]
     Active Substance: ALBUTEROL SULFATE
     Indication: Bronchitis chronic
     Dosage: 100 UG, TID, 100.0 MCG C/8 HORAS
     Route: 065
     Dates: start: 20200707
  6. RABEPRAZOLE [Concomitant]
     Active Substance: RABEPRAZOLE
     Indication: Duodenal ulcer
     Dosage: 20 MG, 20.0 MG DE
     Route: 048
     Dates: start: 20180216
  7. TAMSULOSIN [Concomitant]
     Active Substance: TAMSULOSIN
     Indication: Benign prostatic hyperplasia
     Dosage: 0.4 MG, QD, 0.4 MG C/24 H
     Route: 048
     Dates: start: 20220608
  8. IBUPROFEN [Concomitant]
     Active Substance: IBUPROFEN
     Indication: Cervicobrachial syndrome
     Dosage: 600 MG, 600.0 MG DECE
     Route: 048
     Dates: start: 20190712
  9. DEXAMETHASONE [Concomitant]
     Active Substance: DEXAMETHASONE
     Indication: COVID-19
     Dosage: 4 MG, 4.0 MG DE
     Route: 048
     Dates: start: 20220628, end: 20220704

REACTIONS (1)
  - Tachycardia [Recovered/Resolved]

NARRATIVE: CASE EVENT DATE: 20220702
